FAERS Safety Report 6529519-4 (Version None)
Quarter: 2010Q1

REPORT INFORMATION
  Report Type: 
  Country: None (occurrence: None)
  Receive Date: 20100107
  Receipt Date: 20100104
  Transmission Date: 20100710
  Serious: Yes (Other)
  Sender: FDA-Public Use
  Company Number: CA-SANOFI-AVENTIS-200913006EU

PATIENT
  Age: 27 Year
  Sex: Female
  Weight: 92.9 kg

DRUGS (3)
  1. ENOXAPARIN SODIUM [Suspect]
     Indication: DEEP VEIN THROMBOSIS
     Route: 058
  2. DICLECTIN [Concomitant]
     Indication: NAUSEA
     Route: 048
  3. ASCORBIC ACID AND BIOTIN AND TOCOPHEROL AND NICOTINIC ACID AND RETINOL [Concomitant]
     Indication: NUTRITIONAL SUPPORT
     Route: 048

REACTIONS (2)
  - ABORTION SPONTANEOUS [None]
  - DRUG EXPOSURE DURING PREGNANCY [None]
